FAERS Safety Report 23233691 (Version 3)
Quarter: 2024Q1

REPORT INFORMATION
  Report Type: Report from Study
  Country: CA (occurrence: CA)
  Receive Date: 20231128
  Receipt Date: 20240207
  Transmission Date: 20240409
  Serious: Yes (Other)
  Sender: FDA-Public Use
  Company Number: CA-BAYER-2023A168344

PATIENT
  Sex: Male

DRUGS (1)
  1. EYLEA [Suspect]
     Active Substance: AFLIBERCEPT
     Indication: Diabetic retinal oedema
     Dosage: 2MG/0.05ML INTRAVITREAL INJECTIONS, SOLUTION FOR INJECTION, 40MG/ML
     Route: 031
     Dates: start: 20231003

REACTIONS (2)
  - Visual impairment [Not Recovered/Not Resolved]
  - Vitrectomy [Unknown]
